FAERS Safety Report 4297279-6 (Version None)
Quarter: 2004Q1

REPORT INFORMATION
  Report Type: 
  Country: None (occurrence: None)
  Receive Date: 20040213
  Receipt Date: 20040202
  Transmission Date: 20041129
  Serious: Yes (Death)
  Sender: FDA-Public Use
  Company Number: US-JNJFOC-20040200536

PATIENT
  Age: 87 Year
  Sex: Male

DRUGS (3)
  1. REMICADE [Suspect]
     Dosage: INTRAVENOUS
     Route: 042
  2. PERDNISONE (PREDNISONE) [Concomitant]
  3. CELEBREX [Concomitant]

REACTIONS (1)
  - ROAD TRAFFIC ACCIDENT [None]
